FAERS Safety Report 11121493 (Version 2)
Quarter: 2015Q2

REPORT INFORMATION
  Report Type: Spontaneous
  Country: AU (occurrence: AU)
  Receive Date: 20150519
  Receipt Date: 20150522
  Transmission Date: 20150821
  Serious: Yes (Other)
  Sender: FDA-Public Use
  Company Number: AU-PFIZER INC-2015170319

PATIENT
  Sex: Female

DRUGS (1)
  1. DEPO-PROVERA [Suspect]
     Active Substance: MEDROXYPROGESTERONE ACETATE
     Dosage: 1 DF, SINGLE
     Dates: start: 2012

REACTIONS (7)
  - Amenorrhoea [Unknown]
  - Blood oestrogen decreased [Unknown]
  - Migraine [Unknown]
  - Infertility female [Unknown]
  - Constipation [Unknown]
  - Activities of daily living impaired [Unknown]
  - Abdominal distension [Unknown]
